FAERS Safety Report 7070225-8 (Version None)
Quarter: 2010Q4

REPORT INFORMATION
  Report Type: 
  Country: None (occurrence: None)
  Receive Date: 20101028
  Receipt Date: 20100927
  Transmission Date: 20110411
  Serious: No
  Sender: FDA-Public Use
  Company Number: US-WYE-H17775510

PATIENT
  Sex: Female
  Weight: 50.85 kg

DRUGS (6)
  1. PROTONIX [Suspect]
     Route: 048
     Dates: start: 20100701
  2. CENTRUM [Concomitant]
  3. CARVEDILOL [Concomitant]
  4. OSCAL [Concomitant]
  5. GABAPENTIN [Concomitant]
  6. PLAVIX [Concomitant]

REACTIONS (5)
  - ABDOMINAL DISTENSION [None]
  - DISCOMFORT [None]
  - DRUG INEFFECTIVE [None]
  - FLATULENCE [None]
  - INTENTIONAL DRUG MISUSE [None]
